FAERS Safety Report 4712272-4 (Version None)
Quarter: 2005Q3

REPORT INFORMATION
  Report Type: 
  Country: None (occurrence: None)
  Receive Date: 20050712
  Receipt Date: 20050707
  Transmission Date: 20060218
  Serious: Yes (Hospitalization)
  Sender: FDA-Public Use
  Company Number: US-GLAXOSMITHKLINE-B0387249A

PATIENT
  Age: 26 Year
  Sex: Male

DRUGS (7)
  1. ZIDOVUDINE [Suspect]
     Dosage: 300MG TWICE PER DAY
     Route: 065
  2. LAMIVUDINE [Suspect]
     Dosage: 150MG TWICE PER DAY
     Route: 065
  3. LOPINAVIR + RITONAVIR [Suspect]
     Dosage: 500MG TWICE PER DAY
     Route: 065
  4. AMPHOTERICIN B [Concomitant]
     Dosage: .5MGK PER DAY
     Route: 042
  5. METHYLPREDNISOLONE 16MG TAB [Concomitant]
     Route: 042
  6. FLUCONAZOLE [Concomitant]
     Route: 065
  7. ACETAZOLAMIDE [Concomitant]
     Dosage: 500MG TWICE PER DAY
     Route: 065

REACTIONS (13)
  - ANOREXIA [None]
  - BLINDNESS [None]
  - DEAFNESS [None]
  - DIABETES INSIPIDUS [None]
  - IMMUNE RECONSTITUTION SYNDROME [None]
  - INTRACRANIAL PRESSURE INCREASED [None]
  - NAUSEA [None]
  - NEURALGIA [None]
  - PAPILLOEDEMA [None]
  - POLYDIPSIA [None]
  - POLYURIA [None]
  - VOMITING [None]
  - WEIGHT DECREASED [None]
